FAERS Safety Report 15879619 (Version 3)
Quarter: 2019Q1

REPORT INFORMATION
  Report Type: Spontaneous
  Country: US (occurrence: US)
  Receive Date: 20190128
  Receipt Date: 20190212
  Transmission Date: 20190417
  Serious: Yes (Hospitalization)
  Sender: FDA-Public Use
  Company Number: US-JUBILANT CADISTA PHARMACEUTICALS-2019JUB00017

PATIENT
  Age: 82 Year
  Sex: Female
  Weight: 90.7 kg

DRUGS (3)
  1. UNSPECIFIED WATER PILL [Concomitant]
     Active Substance: UNSPECIFIED INGREDIENT
  2. MECLIZINE HYDROCHLORIDE. [Suspect]
     Active Substance: MECLIZINE HYDROCHLORIDE
     Indication: VERTIGO
     Dosage: 25 MG, 2X/DAY
     Route: 048
     Dates: start: 20190108, end: 20190112
  3. CITALOPRAM [Concomitant]
     Active Substance: CITALOPRAM HYDROBROMIDE

REACTIONS (3)
  - Fear [Recovered/Resolved]
  - Agitation [Recovered/Resolved]
  - Hypersensitivity [Recovered/Resolved]

NARRATIVE: CASE EVENT DATE: 201901
